FAERS Safety Report 21335965 (Version 2)
Quarter: 2024Q1

REPORT INFORMATION
  Report Type: Report from Study
  Country: US (occurrence: US)
  Receive Date: 20220915
  Receipt Date: 20240208
  Transmission Date: 20240410
  Serious: Yes (Other)
  Sender: FDA-Public Use
  Company Number: US-Merck Healthcare KGaA-9350196

PATIENT
  Sex: Female

DRUGS (2)
  1. REBIF [Suspect]
     Active Substance: INTERFERON BETA-1A
     Indication: Multiple sclerosis
     Dosage: REBIJECT II/MANUAL
     Route: 058
     Dates: start: 20170416
  2. REBIF [Suspect]
     Active Substance: INTERFERON BETA-1A

REACTIONS (3)
  - Rheumatoid arthritis [Unknown]
  - Osteoarthritis [Unknown]
  - Pain in extremity [Unknown]
